FAERS Safety Report 15526032 (Version 3)
Quarter: 2019Q1

REPORT INFORMATION
  Report Type: Spontaneous
  Country: FI (occurrence: FI)
  Receive Date: 20181018
  Receipt Date: 20190315
  Transmission Date: 20190417
  Serious: Yes (Hospitalization)
  Sender: FDA-Public Use
  Company Number: FI-CELGENEUS-FIN-20180906991

PATIENT
  Age: 72 Year
  Sex: Male
  Weight: 60.8 kg

DRUGS (27)
  1. AZACITIDINE. [Suspect]
     Active Substance: AZACITIDINE
     Indication: ACUTE MYELOID LEUKAEMIA
     Route: 058
     Dates: start: 20180305
  2. SOLU-CORTEF [Concomitant]
     Active Substance: HYDROCORTISONE SODIUM SUCCINATE
     Indication: TRANSFUSION REACTION
     Dosage: 100 MILLIGRAM
     Route: 041
     Dates: start: 20180910, end: 20180910
  3. CAPHOSOL [Concomitant]
     Active Substance: CALCIUM CHLORIDE\SODIUM CHLORIDE\SODIUM PHOSPHATE, DIBASIC, ANHYDROUS\SODIUM PHOSPHATE, MONOBASIC, ANHYDROUS
     Indication: ORAL CANDIDIASIS
     Route: 065
     Dates: start: 20180405
  4. PEGORION [Concomitant]
     Active Substance: POLYETHYLENE GLYCOL 4000
     Indication: CONSTIPATION
     Route: 048
     Dates: start: 20180409
  5. PANADOL FORTE [Concomitant]
     Indication: PNEUMONIA
     Route: 048
     Dates: start: 20180529
  6. ATRODUAL [Concomitant]
     Indication: CHRONIC OBSTRUCTIVE PULMONARY DISEASE
     Dosage: 6 MILLILITER
     Route: 055
     Dates: start: 20180602, end: 20180608
  7. IMODIUM [Concomitant]
     Active Substance: LOPERAMIDE HYDROCHLORIDE
     Indication: DIARRHOEA
     Route: 048
     Dates: start: 20180405
  8. MYKUNDEX [Concomitant]
     Indication: ORAL CANDIDIASIS
     Dosage: 3 MILLILITER
     Route: 048
     Dates: start: 20180809, end: 20180815
  9. HISTEC [Concomitant]
     Active Substance: CETIRIZINE HYDROCHLORIDE
     Route: 048
     Dates: start: 20180910, end: 20180910
  10. PANACOD [Concomitant]
     Active Substance: ACETAMINOPHEN\CODEINE PHOSPHATE
     Indication: PAIN
     Dosage: 500/30 MG
     Route: 048
     Dates: start: 20180211
  11. PANACOD [Concomitant]
     Active Substance: ACETAMINOPHEN\CODEINE PHOSPHATE
     Indication: ORAL PAIN
  12. VALTREX [Concomitant]
     Active Substance: VALACYCLOVIR HYDROCHLORIDE
     Indication: ANTIVIRAL PROPHYLAXIS
     Dosage: 1000 MILLIGRAM
     Route: 048
     Dates: start: 20180323, end: 20180711
  13. CORSODYL [Concomitant]
     Active Substance: CHLORHEXIDINE GLUCONATE
     Indication: ORAL PAIN
     Route: 065
     Dates: start: 20180405
  14. CAPRILON [Concomitant]
     Indication: MOUTH HAEMORRHAGE
     Route: 048
     Dates: start: 20181011
  15. TEMESTA [Concomitant]
     Indication: PROPHYLAXIS
     Route: 048
     Dates: start: 20180305
  16. VENETOCLAX. [Concomitant]
     Active Substance: VENETOCLAX
     Indication: ACUTE MYELOID LEUKAEMIA
     Route: 048
     Dates: start: 20180305
  17. AZITHROMYCIN ANHYDROUS. [Concomitant]
     Active Substance: AZITHROMYCIN ANHYDROUS
     Indication: INFECTION PROPHYLAXIS
     Dosage: 500 MILLIGRAM
     Route: 048
     Dates: start: 20180724, end: 20180910
  18. OXYNORM [Concomitant]
     Active Substance: OXYCODONE HYDROCHLORIDE
     Indication: ORAL PAIN
     Route: 048
     Dates: start: 20180305
  19. ATRODUAL [Concomitant]
     Indication: PNEUMONIA
     Route: 055
     Dates: start: 20180211
  20. LIDOCAINE. [Concomitant]
     Active Substance: LIDOCAINE
     Indication: ORAL PAIN
     Route: 048
     Dates: start: 20180211
  21. KALEORID [Concomitant]
     Active Substance: POTASSIUM CHLORIDE
     Indication: HYPOKALAEMIA
     Dosage: 1000 MILLIGRAM
     Route: 048
     Dates: start: 20181008
  22. VENTOLINE [Concomitant]
     Active Substance: ALBUTEROL
     Indication: CHRONIC OBSTRUCTIVE PULMONARY DISEASE
     Dosage: 400 MICROGRAM
     Route: 055
     Dates: start: 20180304
  23. SERETIDE [Concomitant]
     Active Substance: FLUTICASONE PROPIONATE\SALMETEROL XINAFOATE
     Indication: ASTHMA
     Dosage: 50/250 UG
     Route: 055
     Dates: start: 20180304
  24. VALTREX [Concomitant]
     Active Substance: VALACYCLOVIR HYDROCHLORIDE
     Dosage: 1000 MILLIGRAM
     Route: 048
     Dates: start: 20180717
  25. COCILLANA [Concomitant]
     Active Substance: COCILLANA
     Indication: COUGH
     Route: 048
     Dates: start: 20180601
  26. HISTEC [Concomitant]
     Active Substance: CETIRIZINE HYDROCHLORIDE
     Indication: TRANSFUSION REACTION
     Route: 048
     Dates: start: 20180605, end: 20180605
  27. EMCONCOR COMP [Concomitant]
     Indication: HYPERTENSION
     Dosage: 2.5/6.225 MG
     Route: 048
     Dates: start: 20181119

REACTIONS (2)
  - C-reactive protein increased [Recovered/Resolved]
  - Pneumonia [Not Recovered/Not Resolved]

NARRATIVE: CASE EVENT DATE: 20180910
